FAERS Safety Report 5466678-9 (Version None)
Quarter: 2007Q3

REPORT INFORMATION
  Report Type: 
  Country: None (occurrence: None)
  Receive Date: 20070924
  Receipt Date: 20070924
  Transmission Date: 20080115
  Serious: Yes (Hospitalization)
  Sender: FDA-Public Use
  Company Number: None

PATIENT
  Age: 22 Year
  Sex: Male
  Weight: 86.637 kg

DRUGS (1)
  1. CHANTIX [Suspect]
     Indication: SMOKING CESSATION THERAPY
     Dates: start: 20070717, end: 20070825

REACTIONS (4)
  - DELUSION [None]
  - HALLUCINATION, AUDITORY [None]
  - INCORRECT DOSE ADMINISTERED [None]
  - INTENTIONAL DRUG MISUSE [None]
